FAERS Safety Report 9605570 (Version 3)
Quarter: 2013Q4

REPORT INFORMATION
  Report Type: Spontaneous
  Country: US (occurrence: US)
  Receive Date: 20131008
  Receipt Date: 20131015
  Transmission Date: 20140711
  Serious: Yes (Other)
  Sender: FDA-Public Use
  Company Number: US-JNJFOC-20061200599

PATIENT
  Age: 79 Year
  Sex: Male

DRUGS (7)
  1. ECONAZOLE [Suspect]
     Indication: CANDIDA INFECTION
     Route: 061
  2. WARFARIN [Interacting]
     Indication: ANTICOAGULANT THERAPY
     Route: 048
  3. WARFARIN [Interacting]
     Indication: ATRIAL FIBRILLATION
     Route: 048
  4. ASPIRIN [Concomitant]
  5. MULTIVITAMIN [Concomitant]
  6. GLUCOSAMINE [Concomitant]
  7. CHONDROITIN SULFATE [Concomitant]

REACTIONS (2)
  - Coagulation time prolonged [Recovered/Resolved]
  - Drug interaction [Unknown]
